FAERS Safety Report 14301866 (Version 4)
Quarter: 2018Q3

REPORT INFORMATION
  Report Type: Report from Study
  Country: DE (occurrence: DE)
  Receive Date: 20171219
  Receipt Date: 20180924
  Transmission Date: 20181010
  Serious: Yes (Hospitalization)
  Sender: FDA-Public Use
  Company Number: DE-MYLANLABS-2017M1079102

PATIENT
  Age: 50 Year
  Sex: Female

DRUGS (4)
  1. HYDROXYCHLOROQUINE [Concomitant]
     Active Substance: HYDROXYCHLOROQUINE
     Indication: PRODUCT USED FOR UNKNOWN INDICATION
     Dosage: 200 MG, UNK
  2. METHOTREXATE. [Suspect]
     Active Substance: METHOTREXATE
     Indication: PRODUCT USED FOR UNKNOWN INDICATION
     Dosage: 10 MG, QW
     Route: 065
     Dates: start: 20160101
  3. HUMIRA [Suspect]
     Active Substance: ADALIMUMAB
     Indication: RHEUMATOID ARTHRITIS
     Dosage: 40 MG, Q2W
     Route: 058
     Dates: start: 20160601
  4. SALAZOSULFAPYRIDINE [Concomitant]
     Active Substance: SULFASALAZINE
     Indication: PRODUCT USED FOR UNKNOWN INDICATION
     Dosage: 500 MG, UNK

REACTIONS (7)
  - Condition aggravated [Not Recovered/Not Resolved]
  - Back pain [Not Recovered/Not Resolved]
  - Fibromyalgia [Not Recovered/Not Resolved]
  - Myopathy [Not Recovered/Not Resolved]
  - Medial tibial stress syndrome [Unknown]
  - Pain [Not Recovered/Not Resolved]
  - Spinal osteoarthritis [Not Recovered/Not Resolved]

NARRATIVE: CASE EVENT DATE: 20170201
